FAERS Safety Report 25661507 (Version 1)
Quarter: 2025Q3

REPORT INFORMATION
  Report Type: Spontaneous
  Country: EU (occurrence: EU)
  Receive Date: 20250808
  Receipt Date: 20250808
  Transmission Date: 20251020
  Serious: Yes (Other)
  Sender: INCYTE
  Company Number: EU-INCYTE CORPORATION-2025IN008553

PATIENT
  Age: 52 Year

DRUGS (1)
  1. PEMAZYRE [Suspect]
     Active Substance: PEMIGATINIB
     Indication: Cholangiocarcinoma
     Route: 065

REACTIONS (2)
  - Superinfection bacterial [Unknown]
  - Onycholysis [Unknown]
